FAERS Safety Report 7216510-8 (Version None)
Quarter: 2011Q1

REPORT INFORMATION
  Report Type: 
  Country: None (occurrence: None)
  Receive Date: 20110107
  Receipt Date: 20101230
  Transmission Date: 20110831
  Serious: Yes (Hospitalization, Other)
  Sender: FDA-Public Use
  Company Number: US-MERCK-1010USA02735

PATIENT
  Age: 50 Year
  Sex: Male
  Weight: 93 kg

DRUGS (24)
  1. NOVOLOG [Concomitant]
     Dosage: 8 UNITS BEFORE MEAL, 3-12 UNITS SLIDING SCALE, 1-4 UNITS AT BEDTIME UNDER THE SKIN
     Route: 065
  2. GABAPENTIN [Concomitant]
     Indication: NEUROPATHY PERIPHERAL
     Route: 048
  3. DOCUSATE SODIUM [Concomitant]
     Route: 048
  4. FAMOTIDINE [Concomitant]
     Indication: DYSPEPSIA
     Route: 048
  5. LISINOPRIL [Concomitant]
     Indication: HYPERTENSION
     Route: 048
  6. LORATADINE [Concomitant]
     Indication: HYPERSENSITIVITY
     Dosage: ENTIRE SEASON EVEN IF FEELING BETTER
     Route: 048
  7. MAGNESIA [MILK OF] [Concomitant]
     Indication: CONSTIPATION
     Route: 048
  8. JANUVIA [Suspect]
     Indication: DIABETES MELLITUS
     Route: 048
     Dates: start: 20091029, end: 20101109
  9. DOCUSATE SODIUM [Concomitant]
     Indication: CONSTIPATION
     Route: 048
  10. FOLIC ACID [Concomitant]
     Route: 048
  11. LANTUS [Concomitant]
     Indication: DIABETES MELLITUS
     Route: 051
  12. METOPROLOL [Concomitant]
     Indication: HYPERTENSION
     Route: 048
  13. ASPIRIN [Concomitant]
     Indication: CARDIAC DISORDER
     Route: 048
  14. CEPHALEXIN [Concomitant]
     Indication: MYOCARDIAL INFARCTION
     Route: 048
  15. FUROSEMIDE [Concomitant]
     Indication: HYPERTENSION
     Route: 048
  16. METFORMIN [Concomitant]
     Indication: DIABETES MELLITUS
     Route: 048
  17. NICOTINELL [Concomitant]
     Indication: TOBACCO USER
     Route: 065
  18. POTASSIUM (UNSPECIFIED) [Concomitant]
     Indication: MINERAL SUPPLEMENTATION
     Dosage: 20 MEQ
     Route: 048
  19. TERBINAFINE [Concomitant]
     Route: 048
  20. OXYCODONE HCL AND ACETAMINOPHEN [Concomitant]
     Indication: PAIN
     Dosage: 1-2 TABLETS Q3-4H AS NEEDED
     Route: 048
  21. MS CONTIN [Concomitant]
     Indication: PAIN
     Route: 048
  22. VITAMINS (UNSPECIFIED) [Concomitant]
     Route: 048
  23. SIMVASTATIN [Concomitant]
     Indication: BLOOD CHOLESTEROL INCREASED
     Route: 048
  24. NORCO [Concomitant]
     Indication: PAIN
     Route: 048

REACTIONS (7)
  - CARDIAC FAILURE CONGESTIVE [None]
  - ANAEMIA [None]
  - PNEUMONIA [None]
  - HYPOGLYCAEMIA [None]
  - MYOCARDIAL INFARCTION [None]
  - CORONARY ARTERY DISEASE [None]
  - PULMONARY EMBOLISM [None]
